FAERS Safety Report 14838602 (Version 2)
Quarter: 2018Q2

REPORT INFORMATION
  Report Type: Spontaneous
  Country: JP (occurrence: JP)
  Receive Date: 20180502
  Receipt Date: 20180508
  Transmission Date: 20180711
  Serious: Yes (Other)
  Sender: FDA-Public Use
  Company Number: JP-BAYER-2018-080136

PATIENT

DRUGS (1)
  1. BAYASPIRIN 100 MG [Suspect]
     Active Substance: ASPIRIN
     Route: 048

REACTIONS (2)
  - Gastrectomy [None]
  - Colectomy [None]
